FAERS Safety Report 9602096 (Version 1)
Quarter: 2013Q4

REPORT INFORMATION
  Report Type: Spontaneous
  Country: US (occurrence: US)
  Receive Date: 20131007
  Receipt Date: 20131007
  Transmission Date: 20140711
  Serious: Yes (Hospitalization)
  Sender: FDA-Public Use
  Company Number: US-BRISTOL-MYERS SQUIBB COMPANY-19395680

PATIENT
  Age: 51 Year
  Sex: Female
  Weight: 101 kg

DRUGS (12)
  1. BELATACEPT [Suspect]
     Indication: RENAL TRANSPLANT
     Route: 042
     Dates: start: 20130709
  2. MYFORTIC [Concomitant]
     Dosage: 2TABS
     Route: 048
     Dates: start: 20130711
  3. PREDNISONE [Concomitant]
     Dosage: 5 MG TABS, TAKE 1.5 TAB PER DAY
     Route: 048
     Dates: start: 20130815
  4. BACTRIM [Concomitant]
     Dosage: 1DF=400-80MG
     Route: 048
     Dates: start: 20130711
  5. CALCITRIOL [Concomitant]
     Dosage: CAPSULE
     Route: 048
     Dates: start: 20130801
  6. MYCELEX TROCHE [Concomitant]
     Dosage: AFTER MEALS
     Route: 048
     Dates: start: 20130711
  7. ERGOCALCIFEROL [Concomitant]
     Dosage: 1DF=50,000 UNIT
     Route: 048
     Dates: start: 20130715
  8. PEPCID [Concomitant]
     Route: 048
     Dates: start: 20130808
  9. SENNA [Concomitant]
     Dosage: 2TABS EVERY MORNING AS NEEDED
     Route: 048
     Dates: start: 20130815
  10. SYNTHROID [Concomitant]
     Dosage: 1 TAB
     Route: 048
  11. VALCYTE [Concomitant]
     Dosage: TAB
     Route: 048
     Dates: start: 20130711
  12. POTASSIUM PHOSPHATE+ SODIUM PHOSPHATE [Concomitant]
     Route: 048
     Dates: start: 20130718

REACTIONS (1)
  - Kidney transplant rejection [Unknown]
